FAERS Safety Report 7227328-4 (Version None)
Quarter: 2011Q1

REPORT INFORMATION
  Report Type: 
  Country: None (occurrence: None)
  Receive Date: 20110114
  Receipt Date: 20110111
  Transmission Date: 20110831
  Serious: Yes (Other)
  Sender: FDA-Public Use
  Company Number: US-SHIRE-SPV1-2011-00046

PATIENT
  Sex: Male

DRUGS (1)
  1. ELAPRASE [Suspect]
     Indication: MUCOPOLYSACCHARIDOSIS II
     Dosage: UNK, 7 VIALS 1X/WEEK
     Route: 041
     Dates: start: 20061019

REACTIONS (4)
  - SYNCOPE [None]
  - NASOPHARYNGITIS [None]
  - HYPOTENSION [None]
  - HYPERTENSION [None]
